FAERS Safety Report 25326504 (Version 2)
Quarter: 2025Q2

REPORT INFORMATION
  Report Type: Report from Study
  Country: US (occurrence: US)
  Receive Date: 20250516
  Receipt Date: 20250526
  Transmission Date: 20250716
  Serious: Yes (Other)
  Sender: MALLINCKRODT
  Company Number: US-MALLINCKRODT-MNK202502264

PATIENT
  Sex: Male

DRUGS (10)
  1. CORTICOTROPIN [Suspect]
     Active Substance: CORTICOTROPIN
     Indication: Ocular pemphigoid
     Route: 058
     Dates: start: 202503, end: 2025
  2. CORTICOTROPIN [Suspect]
     Active Substance: CORTICOTROPIN
     Indication: Monoclonal gammopathy
     Dates: start: 20250424, end: 2025
  3. CORTICOTROPIN [Suspect]
     Active Substance: CORTICOTROPIN
     Indication: Ocular pemphigoid
     Dosage: 40 UNITS
     Dates: start: 202505
  4. PREDNISONE [Concomitant]
     Active Substance: PREDNISONE
     Dates: start: 20240407
  5. PREDNISONE [Concomitant]
     Active Substance: PREDNISONE
     Dates: start: 20240408
  6. PREDNISONE [Concomitant]
     Active Substance: PREDNISONE
     Dates: start: 20240409
  7. PREDNISONE [Concomitant]
     Active Substance: PREDNISONE
     Dates: start: 20240410
  8. PREDNISONE [Concomitant]
     Active Substance: PREDNISONE
     Dates: start: 20240411
  9. PREDNISONE [Concomitant]
     Active Substance: PREDNISONE
     Dates: start: 20240412
  10. MYCOPHENOLATE MOFETIL [Concomitant]
     Active Substance: MYCOPHENOLATE MOFETIL

REACTIONS (9)
  - Haemorrhoidal haemorrhage [Not Recovered/Not Resolved]
  - Hypersomnia [Unknown]
  - Protein total decreased [Unknown]
  - Gait disturbance [Unknown]
  - Feeling abnormal [Unknown]
  - Malaise [Unknown]
  - Swelling face [Unknown]
  - Peripheral swelling [Unknown]
  - Therapy non-responder [Unknown]

NARRATIVE: CASE EVENT DATE: 20250101
